FAERS Safety Report 5355681-5 (Version None)
Quarter: 2007Q2

REPORT INFORMATION
  Report Type: 
  Country: None (occurrence: None)
  Receive Date: 20070530
  Receipt Date: 20070321
  Transmission Date: 20071010
  Serious: Yes (Other)
  Sender: FDA-Public Use
  Company Number: US200703001697

PATIENT
  Age: 64 Year
  Sex: Female
  Weight: 66.7 kg

DRUGS (9)
  1. ZYPREXA [Suspect]
     Dates: end: 20070101
  2. CYMBALTA [Concomitant]
  3. LAMICTAL [Concomitant]
  4. DILANTIN [Concomitant]
  5. PRIMIDONE [Concomitant]
  6. MICARDIS [Concomitant]
  7. RANITIDINE [Concomitant]
  8. NORVASC [Concomitant]
  9. XANAX [Concomitant]

REACTIONS (3)
  - DYSKINESIA [None]
  - EXTRAPYRAMIDAL DISORDER [None]
  - MASKED FACIES [None]
